FAERS Safety Report 19202125 (Version 1)
Quarter: 2021Q2

REPORT INFORMATION
  Report Type: Spontaneous
  Country: US (occurrence: US)
  Receive Date: 20210430
  Receipt Date: 20210430
  Transmission Date: 20210717
  Serious: Yes (Other)
  Sender: FDA-Public Use
  Company Number: US-GLAUKOS-AVE-2021-0110-AE

PATIENT

DRUGS (1)
  1. AVEDRO CROSS?LINKING PRODUCT(S), UNSPECIFIED [Suspect]
     Active Substance: RIBOFLAVIN 5^-PHOSPHATE SODIUM
     Indication: KERATOCONUS
     Route: 047

REACTIONS (3)
  - Suicidal ideation [Unknown]
  - Eye pain [Recovered/Resolved]
  - Disease progression [Unknown]
